FAERS Safety Report 8623548-2 (Version None)
Quarter: 2012Q3

REPORT INFORMATION
  Report Type: 
  Country: None (occurrence: None)
  Receive Date: 20120827
  Receipt Date: 20120822
  Transmission Date: 20120928
  Serious: Yes (Other)
  Sender: FDA-Public Use
  Company Number: BR-SANOFI-AVENTIS-2012SA060694

PATIENT

DRUGS (1)
  1. ALLEGRA [Suspect]
     Route: 065

REACTIONS (3)
  - SUICIDE ATTEMPT [None]
  - PSYCHOTIC DISORDER [None]
  - HEADACHE [None]
